FAERS Safety Report 19351943 (Version 2)
Quarter: 2021Q3

REPORT INFORMATION
  Report Type: Spontaneous
  Country: US (occurrence: US)
  Receive Date: 20210531
  Receipt Date: 20210708
  Transmission Date: 20211014
  Serious: No
  Sender: FDA-Public Use
  Company Number: US-PFIZER INC-2021384265

PATIENT
  Age: 66 Year
  Sex: Male
  Weight: 118.36 kg

DRUGS (1)
  1. INLYTA [Suspect]
     Active Substance: AXITINIB
     Indication: RENAL CELL CARCINOMA
     Dosage: 5 MG, 2X/DAY
     Route: 048
     Dates: start: 20210330

REACTIONS (6)
  - Musculoskeletal discomfort [Unknown]
  - Diarrhoea [Unknown]
  - Hypertension [Unknown]
  - Product dose omission issue [Unknown]
  - Limb discomfort [Unknown]
  - Fatigue [Unknown]

NARRATIVE: CASE EVENT DATE: 20210331
